FAERS Safety Report 13553975 (Version 1)
Quarter: 2017Q2

REPORT INFORMATION
  Report Type: Spontaneous
  Country: MX (occurrence: MX)
  Receive Date: 20170517
  Receipt Date: 20170517
  Transmission Date: 20170830
  Serious: Yes (Hospitalization)
  Sender: FDA-Public Use
  Company Number: MX-GLAXOSMITHKLINE-MX2016GSK181654

PATIENT
  Age: 30 Year
  Sex: Female

DRUGS (5)
  1. EPIVAL [Concomitant]
     Active Substance: DIVALPROEX SODIUM
     Indication: SEIZURE
  2. TEGRETOL [Concomitant]
     Active Substance: CARBAMAZEPINE
  3. LAMICTAL [Suspect]
     Active Substance: LAMOTRIGINE
     Indication: EPILEPSY
     Dosage: 3 DF, QD
  4. RIVOTRIL [Concomitant]
     Active Substance: CLONAZEPAM
     Indication: NERVOUSNESS
  5. KEPPRA [Concomitant]
     Active Substance: LEVETIRACETAM
     Indication: EPILEPSY
     Dosage: UNK
     Dates: start: 2015

REACTIONS (9)
  - Vomiting [Unknown]
  - Therapy cessation [Unknown]
  - Sluggishness [Unknown]
  - Diplopia [Unknown]
  - Vision blurred [Unknown]
  - Drug ineffective [Unknown]
  - Vertigo [Unknown]
  - Drug interaction [Unknown]
  - Ill-defined disorder [Unknown]

NARRATIVE: CASE EVENT DATE: 2015
